FAERS Safety Report 23511746 (Version 1)
Quarter: 2024Q1

REPORT INFORMATION
  Report Type: Spontaneous
  Country: US (occurrence: US)
  Receive Date: 20240212
  Receipt Date: 20240212
  Transmission Date: 20240409
  Serious: No
  Sender: FDA-Public Use
  Company Number: US-SANOFI-01936376

PATIENT
  Age: 22 Year
  Sex: Female

DRUGS (1)
  1. TUBERSOL [Suspect]
     Active Substance: TUBERCULIN PURIFIED PROTEIN DERIVATIVE
     Indication: Tuberculin test
     Dosage: 0.1 ML
     Route: 030
     Dates: start: 20240205, end: 20240205

REACTIONS (1)
  - Poor quality product administered [Unknown]

NARRATIVE: CASE EVENT DATE: 20240205
